FAERS Safety Report 17448040 (Version 1)
Quarter: 2020Q1

REPORT INFORMATION
  Report Type: Spontaneous
  Country: FR (occurrence: FR)
  Receive Date: 20200222
  Receipt Date: 20200222
  Transmission Date: 20200409
  Serious: Yes (Other)
  Sender: FDA-Public Use
  Company Number: FR-ACCORD-173305

PATIENT
  Age: 55 Year
  Sex: Male
  Weight: 83 kg

DRUGS (2)
  1. HYDROCHLOROTHIAZIDE. [Suspect]
     Active Substance: HYDROCHLOROTHIAZIDE
     Indication: HYPERTENSION
     Route: 048
     Dates: start: 20191009, end: 20191013
  2. BISOPROLOL [Suspect]
     Active Substance: BISOPROLOL
     Indication: HYPERTENSION
     Route: 048
     Dates: start: 20191009, end: 20191013

REACTIONS (2)
  - Hypertension [Recovered/Resolved]
  - Therapeutic product ineffective [Unknown]

NARRATIVE: CASE EVENT DATE: 20191009
